FAERS Safety Report 12077950 (Version 2)
Quarter: 2018Q3

REPORT INFORMATION
  Report Type: Spontaneous
  Country: IT (occurrence: IT)
  Receive Date: 20160215
  Receipt Date: 20180920
  Transmission Date: 20181010
  Serious: Yes (Death, Hospitalization, Other)
  Sender: FDA-Public Use
  Company Number: PHHY2016IT017378

PATIENT
  Age: 68 Year
  Sex: Male

DRUGS (5)
  1. PREDNISONE. [Suspect]
     Active Substance: PREDNISONE
     Indication: PEMPHIGUS
     Dosage: 1 MG/KG, QD
     Route: 048
  2. BLEOMYCIN [Suspect]
     Active Substance: BLEOMYCIN SULFATE
     Indication: KAPOSI^S SARCOMA
     Dosage: 15 IU, QW3
     Route: 065
  3. RITUXIMAB. [Suspect]
     Active Substance: RITUXIMAB
     Indication: PEMPHIGUS
     Dosage: 375 MG/M2, QW (ONE CYCLE CONSISTING OF ONE INFUSION OF 375 MG/M2/EVERY WEEK FOR 4 WEEKS)
     Route: 065
  4. IMMUNOGLOBULINS [Suspect]
     Active Substance: IMMUNE GLOBULIN NOS
     Indication: PEMPHIGUS
     Dosage: 400 MG/KG, QD
     Route: 042
  5. AZATHIOPRINE. [Suspect]
     Active Substance: AZATHIOPRINE
     Indication: PEMPHIGUS
     Dosage: 1.25 MG/KG, QD
     Route: 065

REACTIONS (20)
  - Condition aggravated [Unknown]
  - Septic shock [Fatal]
  - Dysphagia [Unknown]
  - Skin lesion [Unknown]
  - Lip erosion [Unknown]
  - Blister [Unknown]
  - Multiple organ dysfunction syndrome [Fatal]
  - Skin erosion [Unknown]
  - Human herpes virus 8 test positive [Unknown]
  - Kaposi^s sarcoma [Recovering/Resolving]
  - Pemphigus [Unknown]
  - Skin mass [Unknown]
  - Pneumonia [Fatal]
  - Pancytopenia [Unknown]
  - Rebound effect [Unknown]
  - Disease recurrence [Unknown]
  - Asthenia [Unknown]
  - Oral disorder [Unknown]
  - Weight decreased [Unknown]
  - Lip ulceration [Unknown]
